FAERS Safety Report 8286638-2 (Version None)
Quarter: 2012Q2

REPORT INFORMATION
  Report Type: 
  Country: None (occurrence: None)
  Receive Date: 20120411
  Receipt Date: 20120327
  Transmission Date: 20120825
  Serious: Yes (Other)
  Sender: FDA-Public Use
  Company Number: 2012MA004343

PATIENT
  Age: 42 Year
  Sex: Female

DRUGS (8)
  1. SALANOL [Concomitant]
  2. TRAMADOL [Concomitant]
  3. LANTUS [Concomitant]
  4. MS CONTIN [Concomitant]
  5. LORATADINE [Concomitant]
  6. ACETAMINOPHEN [Concomitant]
  7. FLUOXETINE HYDROCHLORIDE [Suspect]
     Indication: PRODUCT USED FOR UNKNOWN INDICATION
     Dates: start: 20120103
  8. VITAMIN B SUBSTANCES [Concomitant]

REACTIONS (2)
  - ABDOMINAL PAIN UPPER [None]
  - CONDITION AGGRAVATED [None]
